FAERS Safety Report 23917702 (Version 1)
Quarter: 2024Q2

REPORT INFORMATION
  Report Type: Other
  Country: CN (occurrence: CN)
  Receive Date: 20240530
  Receipt Date: 20240530
  Transmission Date: 20240716
  Serious: Yes (Other)
  Sender: FDA-Public Use
  Company Number: CN-QILU PHARMACEUTICAL (HAINAN) CO.  LTD.-QLH-000087-2024

PATIENT
  Age: 73 Year
  Sex: Female
  Weight: 54.35 kg

DRUGS (3)
  1. IRINOTECAN HYDROCHLORIDE [Suspect]
     Active Substance: IRINOTECAN HYDROCHLORIDE
     Indication: Pancreatic carcinoma
     Dosage: 240 MG IN EVERY 2 WEEKS
     Route: 041
     Dates: start: 20240411, end: 20240411
  2. LEUCOVORIN CALCIUM [Suspect]
     Active Substance: LEUCOVORIN CALCIUM
     Indication: Pancreatic carcinoma
     Dosage: 0.5 G IN EVERY 2 WEEKS
     Route: 041
     Dates: start: 20240411, end: 20240411
  3. FLUOROURACIL [Suspect]
     Active Substance: FLUOROURACIL
     Indication: Pancreatic carcinoma
     Dosage: 0.5 G IN EVEERY 2 WEEKS
     Route: 042
     Dates: start: 20240411, end: 20240411

REACTIONS (2)
  - Extrapyramidal disorder [Recovered/Resolved]
  - Off label use [Recovered/Resolved]

NARRATIVE: CASE EVENT DATE: 20240411
